FAERS Safety Report 7575951-X (Version None)
Quarter: 2011Q2

REPORT INFORMATION
  Report Type: 
  Country: None (occurrence: None)
  Receive Date: 20110628
  Receipt Date: 20090930
  Transmission Date: 20111010
  Serious: Yes (Other)
  Sender: FDA-Public Use
  Company Number: US-BAYER-201039253NA

PATIENT
  Age: 52 Year
  Sex: Male
  Weight: 95.238 kg

DRUGS (13)
  1. MAXZIDE [Concomitant]
  2. HEPARIN [Concomitant]
     Dosage: 30,000 UNITS
     Route: 042
     Dates: start: 20040128
  3. TRASYLOL [Suspect]
     Indication: AORTIC SURGERY
     Dosage: 1 ML, ONCE, INTIAL TEST DOSE
     Route: 042
     Dates: start: 20040128, end: 20040128
  4. ASPIRIN [Concomitant]
     Dosage: 325 MG, UNK
     Route: 048
  5. ANCEF [Concomitant]
     Dosage: 1 G, QID
     Route: 042
  6. CLONIDINE [Concomitant]
     Dosage: 0.2MG TWICE A DAY
     Route: 048
  7. LOPRESSOR [Concomitant]
     Dosage: 200 MG, BID
     Route: 048
  8. TRASYLOL [Suspect]
     Indication: CORONARY ARTERY BYPASS
     Dosage: LOADING DOSE OF 200ML, THEN 50ML/HR
     Route: 042
     Dates: start: 20040128, end: 20040128
  9. BUMEX [Concomitant]
     Dosage: 2 MG, BID
     Route: 048
  10. HYDRALAZINE HCL [Concomitant]
     Dosage: 25 MG, QID
     Route: 048
  11. COUMADIN [Concomitant]
     Dosage: 4 MG, QD
     Route: 048
  12. VERPAMIL HCL [Concomitant]
     Route: 048
  13. PLASMA [Concomitant]
     Dosage: 2 U, ONCE
     Route: 042
     Dates: start: 20040128

REACTIONS (14)
  - RENAL FAILURE [None]
  - FEAR OF DEATH [None]
  - ANHEDONIA [None]
  - EMOTIONAL DISTRESS [None]
  - FEAR [None]
  - DEPRESSION [None]
  - INJURY [None]
  - RENAL INJURY [None]
  - UNEVALUABLE EVENT [None]
  - PAIN [None]
  - NERVOUSNESS [None]
  - DISABILITY [None]
  - MULTI-ORGAN FAILURE [None]
  - ANXIETY [None]
